FAERS Safety Report 15937798 (Version 1)
Quarter: 2019Q1

REPORT INFORMATION
  Report Type: Spontaneous
  Country: US (occurrence: US)
  Receive Date: 20190208
  Receipt Date: 20190208
  Transmission Date: 20190417
  Serious: No
  Sender: FDA-Public Use
  Company Number: US-ROCHE-2159050

PATIENT
  Sex: Male

DRUGS (14)
  1. CLOBETASOL PROPIONATE. [Concomitant]
     Active Substance: CLOBETASOL PROPIONATE
  2. FOLIC ACID. [Concomitant]
     Active Substance: FOLIC ACID
  3. XOLAIR [Suspect]
     Active Substance: OMALIZUMAB
     Indication: PSORIATIC ARTHROPATHY
     Dosage: 150 MG VIAL
     Route: 058
     Dates: start: 20180227
  4. CROMOLYN SODIUM. [Concomitant]
     Active Substance: CROMOLYN SODIUM
  5. OMEPRAZOLE. [Concomitant]
     Active Substance: OMEPRAZOLE
  6. ALPRAZOLAM. [Concomitant]
     Active Substance: ALPRAZOLAM
  7. ASPIRIN. [Concomitant]
     Active Substance: ASPIRIN
  8. LYRICA [Concomitant]
     Active Substance: PREGABALIN
  9. MONTELUKAST SODIUM. [Concomitant]
     Active Substance: MONTELUKAST SODIUM
  10. DESONATE [Concomitant]
     Active Substance: DESONIDE
  11. MIDODRINE HYDROCHLORIDE. [Concomitant]
     Active Substance: MIDODRINE HYDROCHLORIDE
  12. EPIPEN [Concomitant]
     Active Substance: EPINEPHRINE
     Route: 065
  13. FISH OIL [Concomitant]
     Active Substance: FISH OIL
  14. METHOTREXATE. [Concomitant]
     Active Substance: METHOTREXATE

REACTIONS (5)
  - Ill-defined disorder [Not Recovered/Not Resolved]
  - Intentional product use issue [Unknown]
  - Burning sensation [Not Recovered/Not Resolved]
  - Musculoskeletal disorder [Not Recovered/Not Resolved]
  - Off label use [Unknown]
